FAERS Safety Report 7234353-6 (Version None)
Quarter: 2011Q1

REPORT INFORMATION
  Report Type: 
  Country: None (occurrence: None)
  Receive Date: 20110119
  Receipt Date: 20110114
  Transmission Date: 20110831
  Serious: Yes (Death)
  Sender: FDA-Public Use
  Company Number: CA-CELGENEUS-028-21880-11011478

PATIENT
  Sex: Male

DRUGS (7)
  1. SYMBICORT [Concomitant]
     Route: 065
  2. PREDNISONE [Concomitant]
     Route: 065
  3. MORPHINE SULFATE [Concomitant]
     Route: 065
  4. REVLIMID [Suspect]
     Indication: MULTIPLE MYELOMA
     Route: 048
     Dates: start: 20081118
  5. LOVENOX [Concomitant]
     Route: 050
  6. SENOKOT [Concomitant]
     Route: 065
  7. ACYCLOVIR [Concomitant]
     Route: 065

REACTIONS (1)
  - DEATH [None]
